FAERS Safety Report 15711043 (Version 2)
Quarter: 2019Q1

REPORT INFORMATION
  Report Type: Spontaneous
  Country: FR (occurrence: FR)
  Receive Date: 20181211
  Receipt Date: 20190107
  Transmission Date: 20190417
  Serious: Yes (Other)
  Sender: FDA-Public Use
  Company Number: PHHY2018FR173916

PATIENT
  Age: 65 Year
  Sex: Male

DRUGS (3)
  1. INSULIN [Concomitant]
     Active Substance: INSULIN NOS
     Indication: DIABETES MELLITUS
     Route: 065
  2. BSS [Suspect]
     Active Substance: CALCIUM CHLORIDE\MAGNESIUM CHLORIDE\POTASSIUM CHLORIDE\SODIUM ACETATE\SODIUM CHLORIDE\SODIUM CITRATE
     Indication: PRODUCT USED FOR UNKNOWN INDICATION
     Dosage: UNK
     Route: 031
     Dates: start: 20180912, end: 20180912
  3. XALATAN [Concomitant]
     Active Substance: LATANOPROST
     Indication: GLAUCOMA
     Route: 065

REACTIONS (7)
  - Intraocular pressure increased [Unknown]
  - Ulcerative keratitis [Unknown]
  - Toxicity to various agents [Unknown]
  - Dry eye [Unknown]
  - Hypersensitivity [Unknown]
  - Liquid product physical issue [Unknown]
  - Foreign body in eye [Not Recovered/Not Resolved]

NARRATIVE: CASE EVENT DATE: 20180912
